FAERS Safety Report 7810731-9 (Version None)
Quarter: 2011Q4

REPORT INFORMATION
  Report Type: 
  Country: None (occurrence: None)
  Receive Date: 20111006
  Receipt Date: 20110928
  Transmission Date: 20120403
  Serious: Yes (Death, Hospitalization, Other)
  Sender: FDA-Public Use
  Company Number: AUR-APL-2011-05296

PATIENT
  Age: 31 Year
  Sex: Female

DRUGS (2)
  1. TRIMETHOPRIM + SULFAMETHOXAZOLE [Suspect]
     Indication: RESPIRATORY TRACT INFECTION
  2. ZONISAMIDE [Suspect]
     Indication: MIGRAINE

REACTIONS (9)
  - DRUG RASH WITH EOSINOPHILIA AND SYSTEMIC SYMPTOMS [None]
  - HEPATITIS [None]
  - CARDIAC ARREST [None]
  - MYOCARDIAL INFARCTION [None]
  - RENAL FAILURE ACUTE [None]
  - CARDIOMEGALY [None]
  - MYOCARDITIS [None]
  - PERICARDIAL EFFUSION [None]
  - ELECTROCARDIOGRAM ST-T SEGMENT ELEVATION [None]
